FAERS Safety Report 7984256-4 (Version None)
Quarter: 2011Q4

REPORT INFORMATION
  Report Type: 
  Country: None (occurrence: None)
  Receive Date: 20111216
  Receipt Date: 20111202
  Transmission Date: 20120403
  Serious: Yes (Hospitalization, Other)
  Sender: FDA-Public Use
  Company Number: US-JNJFOC-20111202022

PATIENT
  Sex: Female
  Weight: 56.25 kg

DRUGS (6)
  1. PREDNISONE [Concomitant]
     Indication: COLITIS
     Route: 048
     Dates: start: 20010101
  2. REMICADE [Suspect]
     Indication: COLITIS
     Route: 042
     Dates: start: 20110101, end: 20110101
  3. XANAX [Concomitant]
     Indication: ANXIETY
     Route: 048
     Dates: start: 20010101
  4. ALL OTHER THERAPEUTIC PRODUCTS [Concomitant]
     Indication: COLITIS
     Route: 065
  5. REMICADE [Suspect]
     Route: 042
     Dates: start: 20111201
  6. LEVOTHYROXINE SODIUM [Concomitant]
     Indication: THYROID DISORDER
     Route: 048
     Dates: start: 20010101

REACTIONS (8)
  - DYSPEPSIA [None]
  - RETCHING [None]
  - WEIGHT DECREASED [None]
  - HAEMORRHOIDS [None]
  - HAEMORRHAGIC ANAEMIA [None]
  - OEDEMA PERIPHERAL [None]
  - URINARY TRACT INFECTION [None]
  - COLITIS [None]
